FAERS Safety Report 19129789 (Version 1)
Quarter: 2021Q2

REPORT INFORMATION
  Report Type: Spontaneous
  Country: US (occurrence: US)
  Receive Date: 20210413
  Receipt Date: 20210413
  Transmission Date: 20210717
  Serious: No
  Sender: FDA-Public Use
  Company Number: US-TOPROL-2020000401

PATIENT
  Sex: Female

DRUGS (10)
  1. GAZYVA [Concomitant]
     Active Substance: OBINUTUZUMAB
  2. PANTOPRAZOLE SODIUM. [Concomitant]
     Active Substance: PANTOPRAZOLE SODIUM
  3. CALQUENCE [Concomitant]
     Active Substance: ACALABRUTINIB
     Dosage: 100 MG, QD
     Route: 048
     Dates: start: 20190702
  4. ALLOPURINOL. [Concomitant]
     Active Substance: ALLOPURINOL
  5. EFFERVESCENT POTASSIUM CHLOR [Concomitant]
  6. CARDIZEM CD [Concomitant]
     Active Substance: DILTIAZEM HYDROCHLORIDE
  7. ZOCOR [Concomitant]
     Active Substance: SIMVASTATIN
  8. XARELTO [Concomitant]
     Active Substance: RIVAROXABAN
  9. LASIX [Concomitant]
     Active Substance: FUROSEMIDE
  10. METOPROLOL SUCCINATE. [Suspect]
     Active Substance: METOPROLOL SUCCINATE

REACTIONS (2)
  - Drug intolerance [Unknown]
  - Unevaluable event [Unknown]
